FAERS Safety Report 11091000 (Version 1)
Quarter: 2015Q2

REPORT INFORMATION
  Report Type: Spontaneous
  Country: US (occurrence: US)
  Receive Date: 20150505
  Receipt Date: 20150505
  Transmission Date: 20150821
  Serious: Yes (Hospitalization)
  Sender: FDA-Public Use
  Company Number: US-BAYER-2015-189692

PATIENT
  Age: 54 Year
  Sex: Male
  Weight: 81 kg

DRUGS (3)
  1. ALEVE [Suspect]
     Active Substance: NAPROXEN SODIUM
     Indication: PAIN
     Dosage: UNK DF, UNK
  2. NICORETTE [NICOTINE] [Concomitant]
  3. CHANTIX [Concomitant]
     Active Substance: VARENICLINE TARTRATE
     Indication: EX-TOBACCO USER

REACTIONS (2)
  - Appendicitis [Recovered/Resolved]
  - Vomiting [None]

NARRATIVE: CASE EVENT DATE: 20150421
